FAERS Safety Report 13558924 (Version 1)
Quarter: 2017Q2

REPORT INFORMATION
  Report Type: Spontaneous
  Country: IT (occurrence: IT)
  Receive Date: 20170518
  Receipt Date: 20170518
  Transmission Date: 20170830
  Serious: Yes (Hospitalization, Other)
  Sender: FDA-Public Use
  Company Number: IT-SUN PHARMACEUTICAL INDUSTRIES LTD-2017R1-140772

PATIENT
  Age: 27 Year
  Sex: Male

DRUGS (13)
  1. METHOXAMINE [Suspect]
     Active Substance: METHOXAMINE
     Indication: PRODUCT USED FOR UNKNOWN INDICATION
     Dosage: UNK
     Route: 065
  2. DEXTROMETHORPHAN [Suspect]
     Active Substance: DEXTROMETHORPHAN
     Indication: PRODUCT USED FOR UNKNOWN INDICATION
     Dosage: UNK
     Route: 065
  3. 5F-AD B [Suspect]
     Active Substance: 5-FLUORO-ADB, (+/-)-
     Indication: PRODUCT USED FOR UNKNOWN INDICATION
     Dosage: UNK
     Route: 065
  4. PHENCYCLIDINE [Suspect]
     Active Substance: PHENCYCLIDINE
     Indication: PRODUCT USED FOR UNKNOWN INDICATION
     Dosage: UNK
     Route: 065
  5. 3-METHOXYPHENCYCLIDINE [Suspect]
     Active Substance: 3-METHOXYPHENCYCLIDINE
     Indication: PRODUCT USED FOR UNKNOWN INDICATION
     Dosage: UNK
     Route: 065
  6. METHYLPHENIDATE. [Suspect]
     Active Substance: METHYLPHENIDATE
     Indication: PRODUCT USED FOR UNKNOWN INDICATION
     Dosage: UNK
     Route: 065
  7. ETHYLNORKETAMINE [Suspect]
     Active Substance: N-ETHYLNORKETAMINE
     Indication: PRODUCT USED FOR UNKNOWN INDICATION
     Dosage: UNK
     Route: 065
  8. DESCHLOROKETAMINE [Suspect]
     Active Substance: DESCHLOROKETAMINE
     Indication: PRODUCT USED FOR UNKNOWN INDICATION
     Dosage: UNK
     Route: 065
  9. DYPHYLLINE [Suspect]
     Active Substance: DYPHYLLINE
     Indication: PRODUCT USED FOR UNKNOWN INDICATION
     Dosage: UNK
     Route: 065
  10. METHOXPHENIDINE [Suspect]
     Active Substance: METHOXPHENIDINE
     Indication: PRODUCT USED FOR UNKNOWN INDICATION
     Dosage: UNK
     Route: 065
  11. ETHYLKETAMINE [Suspect]
     Active Substance: N-ETHYLNORKETAMINE
     Indication: PRODUCT USED FOR UNKNOWN INDICATION
     Dosage: UNK
     Route: 065
  12. NORKETAMINE [Suspect]
     Active Substance: NORKETAMINE
     Indication: PRODUCT USED FOR UNKNOWN INDICATION
     Dosage: UNK
     Route: 065
  13. 3-HYDROXYPHENCYCLIDINE [Suspect]
     Active Substance: 3-HYDROXYPHENCYCLIDINE
     Indication: PRODUCT USED FOR UNKNOWN INDICATION
     Dosage: UNK
     Route: 065

REACTIONS (9)
  - Psychomotor hyperactivity [Unknown]
  - Delirium [Unknown]
  - Hallucination [Unknown]
  - Dissociative disorder [Unknown]
  - Psychotic disorder [Not Recovered/Not Resolved]
  - Poisoning [Unknown]
  - Drug use disorder [Unknown]
  - Dependence [Not Recovered/Not Resolved]
  - Aggression [Unknown]
